FAERS Safety Report 14270313 (Version 1)
Quarter: 2017Q4

REPORT INFORMATION
  Report Type: Spontaneous
  Country: DE (occurrence: DE)
  Receive Date: 20171211
  Receipt Date: 20171211
  Transmission Date: 20180321
  Serious: Yes (Other)
  Sender: FDA-Public Use
  Company Number: DE-OTSUKA-2015_004933

PATIENT
  Age: 34 Year
  Sex: Female
  Weight: 75 kg

DRUGS (2)
  1. ABILIFY [Suspect]
     Active Substance: ARIPIPRAZOLE
     Indication: SCHIZOAFFECTIVE DISORDER
     Dosage: 30 MG, UNK
     Route: 048
  2. ABILIFY [Suspect]
     Active Substance: ARIPIPRAZOLE
     Dosage: 15 MG, QD
     Route: 048

REACTIONS (5)
  - Off label use [Unknown]
  - Maternal exposure during pregnancy [Recovered/Resolved]
  - Normal newborn [Unknown]
  - Gestational diabetes [Unknown]
  - Caesarean section [Unknown]

NARRATIVE: CASE EVENT DATE: 20151001
